FAERS Safety Report 11766774 (Version 1)
Quarter: 2015Q4

REPORT INFORMATION
  Report Type: Spontaneous
  Country: US (occurrence: US)
  Receive Date: 20151123
  Receipt Date: 20151123
  Transmission Date: 20160304
  Serious: No
  Sender: FDA-Public Use
  Company Number: US-ASTRAZENECA-2015SF10275

PATIENT
  Age: 25004 Day
  Sex: Female
  Weight: 79.8 kg

DRUGS (1)
  1. BYDUREON [Suspect]
     Active Substance: EXENATIDE
     Indication: TYPE 2 DIABETES MELLITUS
     Route: 058
     Dates: start: 20151111

REACTIONS (3)
  - Injection site haemorrhage [Not Recovered/Not Resolved]
  - Dry eye [Unknown]
  - Underdose [Unknown]

NARRATIVE: CASE EVENT DATE: 20151111
